FAERS Safety Report 9167702 (Version 1)
Quarter: 2013Q1

REPORT INFORMATION
  Report Type: Spontaneous
  Country: US (occurrence: None)
  Receive Date: 20130304
  Receipt Date: 20130304
  Transmission Date: 20140127
  Serious: No
  Sender: FDA-Public Use
  Company Number: 2013-03177

PATIENT
  Age: 66 Year
  Sex: Female

DRUGS (1)
  1. MORPHINE SULFATE [Suspect]
     Indication: BACK PAIN

REACTIONS (11)
  - Paraplegia [None]
  - Neurogenic bladder [None]
  - Neurogenic bowel [None]
  - Infusion site granuloma [None]
  - Wheelchair user [None]
  - Decubitus ulcer [None]
  - Necrosis [None]
  - Fibrosis [None]
  - Inflammation [None]
  - Fall [None]
  - Ankle fracture [None]
